FAERS Safety Report 4606194-7 (Version None)
Quarter: 2005Q1

REPORT INFORMATION
  Report Type: 
  Country: None (occurrence: None)
  Receive Date: 20050115
  Receipt Date: 20040616
  Transmission Date: 20050727
  Serious: Yes (Hospitalization, Other)
  Sender: FDA-Public Use
  Company Number: A03200401929

PATIENT
  Age: 76 Year
  Sex: Male

DRUGS (8)
  1. AMBIEN [Suspect]
     Indication: OVERDOSE
     Dosage: 210 MGS DURING ONE DAY - ORAL
     Route: 048
     Dates: start: 20040501, end: 20040501
  2. ZOLPIDEM TARTRATE [Concomitant]
  3. OXYCODONE HCL [Concomitant]
  4. HYDROCODONE/ACETAMINOPHEN [Concomitant]
  5. ESCITALOPRAM OXALATE [Concomitant]
  6. ATORVASTATIN CALCIUM [Concomitant]
  7. RAMIPRIL [Concomitant]
  8. DIAZEPAM [Concomitant]

REACTIONS (3)
  - ACCIDENTAL OVERDOSE [None]
  - AMNESIA [None]
  - SLEEP WALKING [None]
